FAERS Safety Report 20280365 (Version 1)
Quarter: 2022Q1

REPORT INFORMATION
  Report Type: Report from Study
  Country: BR (occurrence: BR)
  Receive Date: 20220103
  Receipt Date: 20220103
  Transmission Date: 20220423
  Serious: Yes (Other)
  Sender: FDA-Public Use
  Company Number: BR-JNJFOC-20211264271

PATIENT
  Age: 9 Year
  Sex: Male
  Weight: 20 kg

DRUGS (1)
  1. INFLIXIMAB [Suspect]
     Active Substance: INFLIXIMAB
     Indication: Crohn^s disease
     Route: 042
     Dates: start: 20150215

REACTIONS (2)
  - Crohn^s disease [Recovered/Resolved]
  - Inappropriate schedule of product administration [Unknown]
